FAERS Safety Report 14070810 (Version 1)
Quarter: 2017Q4

REPORT INFORMATION
  Report Type: Spontaneous
  Country: US (occurrence: US)
  Receive Date: 20171010
  Receipt Date: 20171010
  Transmission Date: 20180321
  Serious: No
  Sender: FDA-Public Use
  Company Number: US-BAYER-2017-186843

PATIENT
  Sex: Male
  Weight: 76 kg

DRUGS (4)
  1. CLARITIN-D 24 HOUR [Suspect]
     Active Substance: LORATADINE\PSEUDOEPHEDRINE SULFATE
     Indication: NASOPHARYNGITIS
     Dosage: 2 DF, QD
     Route: 048
     Dates: start: 20170926, end: 20170928
  2. BAYER ASPIRIN [Concomitant]
     Active Substance: ASPIRIN
  3. LIPITOR [Concomitant]
     Active Substance: ATORVASTATIN CALCIUM
  4. CENTRUM [VIT C,BETACAROT,D3,B9,MIN NOS,RETINOL,VIT E,VIT B NOS] [Concomitant]

REACTIONS (2)
  - Product use issue [Unknown]
  - Dysuria [Unknown]

NARRATIVE: CASE EVENT DATE: 20170928
